FAERS Safety Report 5169561-1 (Version None)
Quarter: 2006Q4

REPORT INFORMATION
  Report Type: 
  Country: None (occurrence: None)
  Receive Date: 20061205
  Receipt Date: 20061124
  Transmission Date: 20070319
  Serious: Yes (Other)
  Sender: FDA-Public Use
  Company Number: 233031

PATIENT
  Age: 42 Year
  Sex: Female
  Weight: 75.1 kg

DRUGS (1)
  1. OMALIZUMAB (OMALIZUMAB)PWDR + SOLVENT, INJECTION SOLN, 150 MG [Suspect]
     Indication: ASTHMA
     Dosage: 300 MG, Q4W, SUBCUTANEOUS
     Route: 058
     Dates: start: 20031117, end: 20061021

REACTIONS (1)
  - METAPLASIA [None]
